FAERS Safety Report 8467428-4 (Version None)
Quarter: 2012Q2

REPORT INFORMATION
  Report Type: 
  Country: None (occurrence: None)
  Receive Date: 20120626
  Receipt Date: 20120625
  Transmission Date: 20120825
  Serious: Yes (Other)
  Sender: FDA-Public Use
  Company Number: US-ROCHE-1081596

PATIENT
  Sex: Female

DRUGS (6)
  1. IXABEPILONE [Concomitant]
     Indication: BREAST CANCER
  2. TRASTUZUMAB [Suspect]
     Indication: BREAST CANCER
  3. LAPATINIB [Concomitant]
     Indication: BREAST CANCER
  4. PACLITAXEL [Concomitant]
     Indication: BREAST CANCER
  5. ANTHRACYCLINE [Concomitant]
     Indication: BREAST CANCER
  6. CAPECITABINE [Suspect]
     Indication: BREAST CANCER

REACTIONS (1)
  - METASTASES TO CENTRAL NERVOUS SYSTEM [None]
